FAERS Safety Report 7736381-0 (Version None)
Quarter: 2011Q3

REPORT INFORMATION
  Report Type: 
  Country: None (occurrence: None)
  Receive Date: 20110908
  Receipt Date: 20110825
  Transmission Date: 20111222
  Serious: Yes (Hospitalization)
  Sender: FDA-Public Use
  Company Number: CH-MYLANLABS-2011S1017681

PATIENT
  Age: 68 Year
  Sex: Female

DRUGS (15)
  1. PANTOPRAZOLE [Concomitant]
     Dosage: 40 MG/DAY
     Route: 065
  2. TORSEMIDE [Concomitant]
     Dosage: 30 MG/DAY
     Route: 065
  3. IBUPROFEN [Suspect]
     Dosage: 800 MG/DAY
     Route: 065
  4. MEFENAMIC ACID [Suspect]
     Dosage: 500 MG/DAY
     Route: 065
  5. ADALIMUMAB [Concomitant]
     Indication: ARTHRITIS
     Route: 065
  6. METFORMIN HCL [Concomitant]
     Dosage: 1000 MG/DAY
     Route: 065
  7. ASPIRIN [Suspect]
     Dosage: 100 MG/DAY
     Route: 065
  8. SITAGLIPTIN [Concomitant]
     Dosage: 100 MG/DAY
     Route: 065
  9. ATORVASTATIN [Concomitant]
     Dosage: 20 MG/DAY
     Route: 065
  10. ACETYLCYSTEINE [Concomitant]
     Dosage: 600MG AS NEEDED
     Route: 065
  11. METHOTREXATE [Suspect]
     Indication: ARTHRITIS
     Route: 058
  12. PREDNISONE [Concomitant]
     Indication: ARTHRITIS
     Dosage: 5 MG/DAY
     Route: 065
  13. LEVOTHYROXINE SODIUM [Concomitant]
     Indication: HYPOTHYROIDISM
     Dosage: 75 MG/DAY
     Route: 065
  14. METOPROLOL [Concomitant]
     Dosage: 50 MG/DAY
     Route: 065
  15. LOSARTAN POTASSIUM [Concomitant]
     Dosage: 100 MG/DAY
     Route: 065

REACTIONS (4)
  - PANCYTOPENIA [None]
  - ASPERGILLOSIS [None]
  - RENAL FAILURE ACUTE [None]
  - MOUTH ULCERATION [None]
